FAERS Safety Report 4903749-7 (Version None)
Quarter: 2006Q1

REPORT INFORMATION
  Report Type: 
  Country: None (occurrence: None)
  Receive Date: 20060203
  Receipt Date: 20060126
  Transmission Date: 20060701
  Serious: Yes (Other)
  Sender: FDA-Public Use
  Company Number: 2006006771

PATIENT
  Age: 30 Year
  Sex: Female

DRUGS (12)
  1. SORTIS (ATORVASTATIN) [Suspect]
     Indication: LIPID METABOLISM DISORDER
     Dosage: 20 MG (20 MG, 1 IN 1 D), ORAL
     Route: 048
  2. MIGRALEVE (PARACETAMOL CODEINE PHOSPHATE, BUCLIZINE HYDROCHLORIDE) [Suspect]
     Indication: MIGRAINE
     Dosage: 1 DOSAGE FORM (3 IN 1 D), ORAL
     Route: 048
  3. IRBESARTAN [Suspect]
     Indication: SECONDARY HYPERTENSION
     Dosage: 150 MG (150 MG , DAILY), ORAL
     Route: 048
  4. LASIX [Suspect]
     Indication: HYPERTENSION
     Dosage: 250 MG (250 MG, DAILY), ORAL
     Route: 048
  5. CINACALCET HYDROCHLORIDE (CINACALCET HYDROCHLORIDE) [Suspect]
     Indication: RENAL IMPAIRMENT
     Dosage: 30 MG (30 MG, 1 IN 1 D), ORAL
     Route: 048
  6. NEXIUM [Concomitant]
  7. METOPROLOL TARTRATE [Concomitant]
  8. ASPIRIN [Concomitant]
  9. ROCALTROL [Concomitant]
  10. RENAGEL [Concomitant]
  11. MULTIVITAMIN [Concomitant]
  12. CALCIUM ACETATE (CALCIUM ACETATE) [Concomitant]

REACTIONS (3)
  - ABORTION INDUCED [None]
  - DRUG EXPOSURE DURING PREGNANCY [None]
  - PREGNANCY [None]
